FAERS Safety Report 5274388-6 (Version None)
Quarter: 2007Q1

REPORT INFORMATION
  Report Type: 
  Country: None (occurrence: None)
  Receive Date: 20070323
  Receipt Date: 20070314
  Transmission Date: 20070707
  Serious: Yes (Other)
  Sender: FDA-Public Use
  Company Number: NO-PFIZER INC-2007010065

PATIENT
  Age: 43 Year
  Sex: Female

DRUGS (6)
  1. LYRICA [Suspect]
     Indication: NEURALGIA
  2. ALL OTHER THERAPEUTIC PRODUCTS [Concomitant]
  3. PARALGIN FORTE [Concomitant]
     Indication: PAIN
  4. SOMADRIL [Concomitant]
     Indication: PAIN
  5. TOLVON [Concomitant]
     Indication: DEPRESSION
  6. ANERVAN [Concomitant]
     Indication: MIGRAINE

REACTIONS (3)
  - DYSARTHRIA [None]
  - HEMIPLEGIA [None]
  - OVERDOSE [None]
